FAERS Safety Report 7925611-8 (Version None)
Quarter: 2011Q4

REPORT INFORMATION
  Report Type: 
  Country: None (occurrence: None)
  Receive Date: 20111118
  Receipt Date: 20110408
  Transmission Date: 20120403
  Serious: No
  Sender: FDA-Public Use
  Company Number: US-AMGEN-USASP2011018811

PATIENT
  Age: 57 Year
  Sex: Female

DRUGS (1)
  1. ENBREL [Suspect]
     Indication: RHEUMATOID ARTHRITIS
     Dosage: 50 MG, Q3WK
     Dates: start: 20060101

REACTIONS (5)
  - PARANASAL SINUS HYPERSECRETION [None]
  - RHINITIS [None]
  - CHAPPED LIPS [None]
  - LIP SWELLING [None]
  - STOMATITIS [None]
